FAERS Safety Report 4655095-7 (Version None)
Quarter: 2005Q2

REPORT INFORMATION
  Report Type: 
  Country: None (occurrence: None)
  Receive Date: 20050504
  Receipt Date: 20050421
  Transmission Date: 20051028
  Serious: Yes (Other)
  Sender: FDA-Public Use
  Company Number: 2005059790

PATIENT
  Age: 54 Year
  Sex: Female
  Weight: 100 kg

DRUGS (2)
  1. BEXTRA [Suspect]
     Indication: RHEUMATOID ARTHRITIS
     Dosage: 20 MG (20 MG, 1 IN 1 D), ORAL
     Route: 048
     Dates: start: 20050330, end: 20050408
  2. DICLOFENAC SODIUM [Concomitant]

REACTIONS (4)
  - ANGIONEUROTIC OEDEMA [None]
  - EXANTHEM [None]
  - OEDEMA PERIPHERAL [None]
  - SKIN HAEMORRHAGE [None]
